FAERS Safety Report 8256320-6 (Version None)
Quarter: 2012Q2

REPORT INFORMATION
  Report Type: 
  Country: None (occurrence: None)
  Receive Date: 20120403
  Receipt Date: 20120320
  Transmission Date: 20120825
  Serious: Yes (Other)
  Sender: FDA-Public Use
  Company Number: BR-AMGEN-BRASP2012019747

PATIENT
  Age: 43 Year
  Sex: Female
  Weight: 61 kg

DRUGS (4)
  1. ATROVERAN                          /01607701/ [Concomitant]
     Indication: ABDOMINAL PAIN
     Dosage: UNK
  2. ENBREL [Suspect]
     Indication: ANKYLOSING SPONDYLITIS
     Dosage: 50 MG, WEEKLY
     Route: 058
     Dates: start: 20110201
  3. ACETAMINOPHEN [Concomitant]
     Indication: PAIN
     Dosage: WHEN FEELING PAIN
  4. DICLOFENAC SODIUM [Concomitant]
     Indication: PAIN
     Dosage: WHEN FEELING PAIN

REACTIONS (7)
  - NAUSEA [None]
  - TREMOR [None]
  - ABDOMINAL DISCOMFORT [None]
  - INJECTION SITE DISCOMFORT [None]
  - VULVOVAGINAL INJURY [None]
  - PAIN [None]
  - DIZZINESS [None]
